FAERS Safety Report 20753704 (Version 1)
Quarter: 2022Q2

REPORT INFORMATION
  Report Type: Spontaneous
  Country: US (occurrence: None)
  Receive Date: 20220426
  Receipt Date: 20220426
  Transmission Date: 20220721
  Serious: No
  Sender: FDA-Public Use
  Company Number: US-ROCHE-3032653

PATIENT
  Age: 89 Year
  Sex: Male

DRUGS (1)
  1. ESBRIET [Suspect]
     Active Substance: PIRFENIDONE
     Indication: Pulmonary fibrosis
     Dosage: TAKE 1 CAPSULE BY MOUTH 3 TIMES A DAY FOR 2 WEEKS THEN 2 CAPSULES BY MOUTH 3 TIMES A DAY FOR 2 WEEKS
     Route: 048
     Dates: start: 202201

REACTIONS (2)
  - Off label use [Unknown]
  - No adverse event [Unknown]

NARRATIVE: CASE EVENT DATE: 20220215
